FAERS Safety Report 20269382 (Version 1)
Quarter: 2022Q1

REPORT INFORMATION
  Report Type: Spontaneous
  Country: FR (occurrence: FR)
  Receive Date: 20220101
  Receipt Date: 20220101
  Transmission Date: 20220423
  Serious: Yes (Hospitalization, Other)
  Sender: FDA-Public Use
  Company Number: FR-AFSSAPS-RE20213097

PATIENT
  Age: 30 Year
  Sex: Male
  Weight: 115 kg

DRUGS (6)
  1. PAROXETINE [Suspect]
     Active Substance: PAROXETINE
     Indication: Product used for unknown indication
     Dosage: 20 MILLIGRAM, ONCE A DAY
     Route: 048
     Dates: start: 20200901
  2. METHADONE HYDROCHLORIDE [Suspect]
     Active Substance: METHADONE HYDROCHLORIDE
     Indication: Substance dependence
     Dosage: 80 MILLIGRAM, ONCE A DAY
     Route: 048
     Dates: start: 20180101, end: 20210922
  3. SCOPOLAMINE [Suspect]
     Active Substance: SCOPOLAMINE
     Indication: Product used for unknown indication
     Dosage: 2 DOSAGE FORM, 3 TIMES A DAY
     Route: 048
     Dates: start: 20210421
  4. VALIUM [Suspect]
     Active Substance: DIAZEPAM
     Indication: Product used for unknown indication
     Dosage: 30 MILLIGRAM, ONCE A DAY
     Route: 048
     Dates: start: 20200901
  5. HALDOL [Suspect]
     Active Substance: HALOPERIDOL
     Indication: Product used for unknown indication
     Dosage: 20 MILLIGRAM, ONCE A DAY
     Route: 048
     Dates: start: 20200901
  6. VALPROATE SODIUM [Suspect]
     Active Substance: VALPROATE SODIUM
     Indication: Product used for unknown indication
     Dosage: 200 MILLIGRAM, ONCE A DAY
     Route: 048
     Dates: start: 20200901

REACTIONS (1)
  - Pneumonia aspiration [Recovered/Resolved]

NARRATIVE: CASE EVENT DATE: 20210922
